FAERS Safety Report 7650741-8 (Version None)
Quarter: 2011Q3

REPORT INFORMATION
  Report Type: 
  Country: None (occurrence: None)
  Receive Date: 20110802
  Receipt Date: 20110727
  Transmission Date: 20111222
  Serious: Yes (Hospitalization)
  Sender: FDA-Public Use
  Company Number: JP-PFIZER INC-2011170450

PATIENT
  Age: 33 Year
  Sex: Female

DRUGS (3)
  1. LORCAM [Suspect]
     Dosage: 4 MG, 3X/DAY
  2. TEPRENONE [Concomitant]
     Dosage: 50 MG, 3X/DAY
  3. AZULFIDINE [Suspect]
     Indication: RHEUMATOID ARTHRITIS
     Dosage: 500 MG, 2X/DAY
     Route: 048
     Dates: start: 20110620, end: 20110629

REACTIONS (3)
  - PYREXIA [None]
  - LYMPHADENOPATHY [None]
  - LYMPHADENITIS [None]
